FAERS Safety Report 5518561-8 (Version None)
Quarter: 2007Q4

REPORT INFORMATION
  Report Type: 
  Country: None (occurrence: None)
  Receive Date: 20071115
  Receipt Date: 20071105
  Transmission Date: 20080405
  Serious: Yes (Death)
  Sender: FDA-Public Use
  Company Number: IN-PFIZER INC-2007093226

PATIENT
  Age: 20 Year
  Sex: Male

DRUGS (3)
  1. PREDNISOLONE [Suspect]
     Indication: EOSINOPHILIA
     Dosage: DAILY DOSE:25MG
     Route: 048
  2. PREDNISOLONE [Suspect]
     Indication: URTICARIA
  3. OMEPRAZOLE [Concomitant]
     Route: 048

REACTIONS (2)
  - MULTI-ORGAN FAILURE [None]
  - STRONGYLOIDIASIS [None]
